FAERS Safety Report 5762402-0 (Version None)
Quarter: 2008Q2

REPORT INFORMATION
  Report Type: 
  Country: None (occurrence: None)
  Receive Date: 20080609
  Receipt Date: 20080529
  Transmission Date: 20081010
  Serious: Yes (Life-Threatening, Other)
  Sender: FDA-Public Use
  Company Number: DE-AMGEN-UK274511

PATIENT
  Sex: Female

DRUGS (3)
  1. NEULASTA [Suspect]
     Indication: CHEMOTHERAPY
     Route: 058
     Dates: start: 20080219, end: 20080219
  2. CLEXANE [Concomitant]
     Route: 058
     Dates: start: 20071101
  3. DEXAMETHASONE TAB [Concomitant]
     Route: 048
     Dates: end: 20080218

REACTIONS (5)
  - ANAPHYLACTIC SHOCK [None]
  - DIZZINESS [None]
  - DYSPNOEA [None]
  - LOSS OF CONSCIOUSNESS [None]
  - URINARY INCONTINENCE [None]
